FAERS Safety Report 9888749 (Version 1)
Quarter: 2014Q1

REPORT INFORMATION
  Report Type: Spontaneous
  Country: US (occurrence: US)
  Receive Date: 20140211
  Receipt Date: 20140211
  Transmission Date: 20141002
  Serious: Yes (Hospitalization, Other)
  Sender: FDA-Public Use
  Company Number: US-BRISTOL-MYERS SQUIBB COMPANY-20117552

PATIENT
  Age: 70 Year
  Sex: Male
  Weight: 58.96 kg

DRUGS (6)
  1. COUMADIN [Suspect]
     Dosage: 3.5 MG PER DAY
     Dates: start: 20010714
  2. LISINOPRIL [Concomitant]
  3. PROVAS [Concomitant]
  4. HCTZ [Concomitant]
  5. PROSCAR [Concomitant]
  6. SIMVASTATIN [Concomitant]

REACTIONS (18)
  - Cerebral haemorrhage [Unknown]
  - Cardiac failure [Unknown]
  - Blood pressure increased [Unknown]
  - Prostate cancer [Unknown]
  - Arthropathy [Unknown]
  - Sciatica [Unknown]
  - Back disorder [Unknown]
  - Renal pain [Unknown]
  - International normalised ratio increased [Unknown]
  - Amaurosis fugax [Unknown]
  - Blood urine present [Unknown]
  - Haematochezia [Unknown]
  - Herpes zoster [Unknown]
  - Overdose [Unknown]
  - Weight decreased [Unknown]
  - Vertigo [Unknown]
  - Urinary incontinence [Unknown]
  - Faecal incontinence [Unknown]
